FAERS Safety Report 9523075 (Version 1)
Quarter: 2013Q3

REPORT INFORMATION
  Report Type: Spontaneous
  Country: US (occurrence: US)
  Receive Date: 20130913
  Receipt Date: 20130913
  Transmission Date: 20140515
  Serious: Yes (Other)
  Sender: FDA-Public Use
  Company Number: US-PFIZER INC-2013264694

PATIENT
  Age: 56 Year
  Sex: Male

DRUGS (1)
  1. RAPAMUNE [Suspect]
     Indication: RENAL TRANSPLANT
     Dosage: 1 MG, UNK
     Dates: start: 20130620

REACTIONS (1)
  - Renal disorder [Unknown]
